FAERS Safety Report 25732781 (Version 1)
Quarter: 2025Q3

REPORT INFORMATION
  Report Type: Spontaneous
  Country: US (occurrence: US)
  Receive Date: 20250827
  Receipt Date: 20250827
  Transmission Date: 20251021
  Serious: No
  Sender: ALEXION PHARMACEUTICALS
  Company Number: US-AstraZeneca-CH-00936569AP

PATIENT
  Sex: Male

DRUGS (3)
  1. BYETTA [Suspect]
     Active Substance: EXENATIDE
     Indication: Type 2 diabetes mellitus
     Dosage: 5 MICROGRAM, BID
     Route: 065
  2. BYDUREON BCISE [Suspect]
     Active Substance: EXENATIDE
     Indication: Type 2 diabetes mellitus
     Dosage: 2 MILLIGRAM, QW
     Route: 065
  3. OZEMPIC [Suspect]
     Active Substance: SEMAGLUTIDE
     Route: 065

REACTIONS (8)
  - Wrong product administered [Unknown]
  - Blood glucose fluctuation [Unknown]
  - Drug effect less than expected [Unknown]
  - Decreased appetite [Unknown]
  - Prostatic disorder [Unknown]
  - Wrong technique in device usage process [Unknown]
  - Product use issue [Unknown]
  - Insurance issue [Unknown]
